FAERS Safety Report 21047512 (Version 2)
Quarter: 2022Q3

REPORT INFORMATION
  Report Type: Spontaneous
  Country: US (occurrence: US)
  Receive Date: 20220706
  Receipt Date: 20220708
  Transmission Date: 20221026
  Serious: No
  Sender: FDA-Public Use
  Company Number: US-PFIZER INC-PV202200012128

PATIENT
  Age: 74 Year
  Sex: Female

DRUGS (2)
  1. MEDROL [Suspect]
     Active Substance: METHYLPREDNISOLONE
     Indication: Sciatica
     Dosage: UNK
     Route: 065
  2. JAKAFI [Suspect]
     Active Substance: RUXOLITINIB
     Indication: Myeloproliferative neoplasm
     Dosage: 10 MG, 2X/DAY
     Route: 048
     Dates: start: 202003

REACTIONS (4)
  - Sciatica [Unknown]
  - Intervertebral disc protrusion [Unknown]
  - Headache [Unknown]
  - Off label use [Unknown]

NARRATIVE: CASE EVENT DATE: 20210801
